FAERS Safety Report 15147264 (Version 1)
Quarter: 2018Q3

REPORT INFORMATION
  Report Type: Spontaneous
  Country: US (occurrence: US)
  Receive Date: 20180619
  Receipt Date: 20180619
  Transmission Date: 20181010
  Serious: Yes (Hospitalization)
  Sender: FDA-Public Use
  Company Number: None

PATIENT
  Age: 82 Year
  Sex: Female
  Weight: 72 kg

DRUGS (1)
  1. ZYPREXA [Suspect]
     Active Substance: OLANZAPINE
     Indication: DEMENTIA
     Dates: start: 20090401, end: 20160301

REACTIONS (11)
  - Prescribed overdose [None]
  - Weight increased [None]
  - Psychomotor skills impaired [None]
  - Gait disturbance [None]
  - Feeling abnormal [None]
  - Therapy change [None]
  - Personality change [None]
  - Abnormal behaviour [None]
  - Off label use [None]
  - Product use in unapproved indication [None]
  - Balance disorder [None]

NARRATIVE: CASE EVENT DATE: 20100104
